FAERS Safety Report 24916145 (Version 1)
Quarter: 2025Q1

REPORT INFORMATION
  Report Type: Spontaneous
  Country: GB (occurrence: GB)
  Receive Date: 20250203
  Receipt Date: 20250203
  Transmission Date: 20250409
  Serious: Yes (Other)
  Sender: TEVA
  Company Number: None

PATIENT
  Sex: Male

DRUGS (3)
  1. MIRTAZAPINE [Suspect]
     Active Substance: MIRTAZAPINE
     Indication: Insomnia
     Route: 065
     Dates: start: 20250124, end: 20250125
  2. PROPRANOLOL [Concomitant]
     Active Substance: PROPRANOLOL HYDROCHLORIDE
     Indication: Insomnia
     Dates: start: 20210101
  3. FAMOTIDINE [Concomitant]
     Active Substance: FAMOTIDINE
     Indication: Reflux laryngitis
     Dates: end: 20241201

REACTIONS (6)
  - Brain fog [Recovering/Resolving]
  - Somnolence [Recovering/Resolving]
  - Insomnia [Recovering/Resolving]
  - Pruritus [Recovered/Resolved]
  - Balance disorder [Recovered/Resolved]
  - Agitation [Recovered/Resolved]

NARRATIVE: CASE EVENT DATE: 20240124
